FAERS Safety Report 21702329 (Version 1)
Quarter: 2022Q4

REPORT INFORMATION
  Report Type: Spontaneous
  Country: None (occurrence: FR)
  Receive Date: 20221208
  Receipt Date: 20221208
  Transmission Date: 20230112
  Serious: Yes (Death, Life-Threatening, Other)
  Sender: FDA-Public Use
  Company Number: FR-B.Braun Medical Inc.-2135704

PATIENT
  Age: 20 Year
  Sex: Male

DRUGS (9)
  1. ACETAMINOPHEN [Suspect]
     Active Substance: ACETAMINOPHEN
     Indication: Pain
     Route: 040
     Dates: start: 20220906, end: 20220907
  2. PROPOFOL [Suspect]
     Active Substance: PROPOFOL
     Route: 040
     Dates: start: 20220906, end: 20220906
  3. ONDANSETRON [Suspect]
     Active Substance: ONDANSETRON
     Route: 040
     Dates: start: 20220906, end: 20220906
  4. KETAMINE HYDROCHLORIDE [Suspect]
     Active Substance: KETAMINE HYDROCHLORIDE
     Route: 040
     Dates: start: 20220906, end: 20220906
  5. TRANEXAMIC ACID [Suspect]
     Active Substance: TRANEXAMIC ACID
     Route: 040
     Dates: start: 20220906, end: 20220906
  6. CEFAZOLIN SODIUM [Suspect]
     Active Substance: CEFAZOLIN SODIUM
     Route: 040
     Dates: start: 20220906, end: 20220906
  7. DEXAMETHASONE [Suspect]
     Active Substance: DEXAMETHASONE
     Route: 040
     Dates: start: 20220906, end: 20220906
  8. MORPHINE SULFATE [Suspect]
     Active Substance: MORPHINE SULFATE
     Route: 040
     Dates: start: 20220906, end: 20220906
  9. KETOPROFEN [Suspect]
     Active Substance: KETOPROFEN
     Route: 040
     Dates: start: 20220906, end: 20220906

REACTIONS (3)
  - Cardio-respiratory arrest [Fatal]
  - Ventricular fibrillation [Fatal]
  - Cardiogenic shock [Fatal]
